FAERS Safety Report 20393683 (Version 4)
Quarter: 2022Q1

REPORT INFORMATION
  Report Type: Report from Study
  Country: US (occurrence: US)
  Receive Date: 20220128
  Receipt Date: 20220322
  Transmission Date: 20220423
  Serious: Yes (Hospitalization)
  Sender: FDA-Public Use
  Company Number: US-ABBVIE-22P-163-4243861-00

PATIENT
  Age: 72 Year
  Sex: Female
  Weight: 62 kg

DRUGS (39)
  1. IBRUTINIB [Suspect]
     Active Substance: IBRUTINIB
     Indication: Chronic lymphocytic leukaemia
     Route: 048
     Dates: start: 20210730, end: 20211029
  2. IBRUTINIB [Suspect]
     Active Substance: IBRUTINIB
     Route: 048
     Dates: start: 20210720, end: 20211029
  3. JCAR017(LISOCABTAGENE MARALEUCEL) [Concomitant]
     Indication: Chronic lymphocytic leukaemia
     Dosage: 100 X 10 ^6 CAR + T CELLS, SINGLE
     Route: 042
     Dates: start: 20210826, end: 20210826
  4. CYCLOPHOSPHAMIDE [Concomitant]
     Active Substance: CYCLOPHOSPHAMIDE
     Indication: Chronic lymphocytic leukaemia
     Route: 042
     Dates: start: 20210821, end: 20210823
  5. FLUDARABINE [Concomitant]
     Active Substance: FLUDARABINE PHOSPHATE
     Indication: Chronic lymphocytic leukaemia
     Route: 042
     Dates: start: 20210821, end: 20210823
  6. ALLOPURINOL [Concomitant]
     Active Substance: ALLOPURINOL
     Indication: Chronic lymphocytic leukaemia
     Route: 048
  7. LEVOFLOXACIN [Concomitant]
     Active Substance: LEVOFLOXACIN
     Indication: Prophylaxis
     Route: 048
  8. MAGNESIUM OXIDE [Concomitant]
     Active Substance: MAGNESIUM OXIDE
     Indication: Supplementation therapy
     Route: 048
     Dates: start: 20210904
  9. CALCIUM CITRATE, VITAMIN D NOS [Concomitant]
     Indication: Supplementation therapy
     Route: 048
     Dates: start: 20210905
  10. SODIUM CHLORIDE [Concomitant]
     Active Substance: SODIUM CHLORIDE
     Indication: Fluid replacement
     Route: 042
     Dates: start: 20210905
  11. SODIUM CHLORIDE [Concomitant]
     Active Substance: SODIUM CHLORIDE
     Route: 042
     Dates: start: 20211114, end: 20211114
  12. ONDANSETRON [Concomitant]
     Active Substance: ONDANSETRON
     Indication: Nausea
     Route: 042
     Dates: start: 20210715
  13. ONDANSETRON [Concomitant]
     Active Substance: ONDANSETRON
     Indication: Vomiting
     Route: 048
     Dates: start: 20211017
  14. ONDANSETRON [Concomitant]
     Active Substance: ONDANSETRON
     Route: 048
     Dates: start: 20211104
  15. ONDANSETRON [Concomitant]
     Active Substance: ONDANSETRON
     Route: 048
     Dates: start: 20211114, end: 20211114
  16. ONDANSETRON [Concomitant]
     Active Substance: ONDANSETRON
     Route: 048
     Dates: start: 20211128
  17. ACETAMINOPHEN [Concomitant]
     Active Substance: ACETAMINOPHEN
     Indication: Pain
     Route: 048
     Dates: start: 20210904
  18. ACETAMINOPHEN [Concomitant]
     Active Substance: ACETAMINOPHEN
     Indication: Pyrexia
     Route: 048
     Dates: start: 20211017
  19. ACETAMINOPHEN [Concomitant]
     Active Substance: ACETAMINOPHEN
     Dates: start: 20211114, end: 20211114
  20. ESCITALOPRAM [Concomitant]
     Active Substance: ESCITALOPRAM OXALATE
     Indication: Product used for unknown indication
     Route: 048
     Dates: start: 20210904
  21. ACYCLOVIR [Concomitant]
     Active Substance: ACYCLOVIR
     Indication: Antiviral treatment
     Route: 048
     Dates: start: 20210927
  22. DAPSONE [Concomitant]
     Active Substance: DAPSONE
     Indication: Pancytopenia
     Route: 048
     Dates: start: 20210928
  23. CLONAZEPAM [Concomitant]
     Active Substance: CLONAZEPAM
     Indication: Insomnia
     Route: 048
     Dates: start: 20210928
  24. CALCIUM CARBONATE [Concomitant]
     Active Substance: CALCIUM CARBONATE
     Indication: Product used for unknown indication
     Route: 048
     Dates: start: 20211017
  25. PROMETHAZINE [Concomitant]
     Active Substance: PROMETHAZINE HYDROCHLORIDE
     Indication: Nausea
     Route: 048
     Dates: start: 20211104
  26. PROMETHAZINE [Concomitant]
     Active Substance: PROMETHAZINE HYDROCHLORIDE
     Indication: Vomiting
  27. POTASSIUM CHLORIDE [Concomitant]
     Active Substance: POTASSIUM CHLORIDE
     Indication: Product used for unknown indication
     Route: 048
     Dates: start: 20211019
  28. ERGOCALCIFEROL, CALCIUM CITRATE [Concomitant]
     Indication: Product used for unknown indication
     Route: 048
     Dates: start: 20211019
  29. MORPHINE SULFATE [Concomitant]
     Active Substance: MORPHINE SULFATE
     Indication: Product used for unknown indication
     Route: 048
     Dates: start: 20211017
  30. MORPHINE SULFATE [Concomitant]
     Active Substance: MORPHINE SULFATE
     Dates: start: 20211114, end: 20211114
  31. ENOXAPARIN SODIUM [Concomitant]
     Active Substance: ENOXAPARIN SODIUM
     Indication: Product used for unknown indication
     Route: 058
     Dates: start: 20211114, end: 20211114
  32. NYSTATIN [Concomitant]
     Active Substance: NYSTATIN
     Indication: Oral candidiasis
     Route: 048
     Dates: start: 20211029
  33. NYSTATIN [Concomitant]
     Active Substance: NYSTATIN
     Route: 048
     Dates: start: 20211124, end: 20211212
  34. NYSTATIN [Concomitant]
     Active Substance: NYSTATIN
     Route: 048
     Dates: start: 20211211
  35. NYSTATIN [Concomitant]
     Active Substance: NYSTATIN
     Route: 048
     Dates: start: 20220101
  36. SULFAMETHOXAZOLE, TRIETHOPRIM [Concomitant]
     Indication: Antibiotic prophylaxis
     Route: 048
     Dates: start: 20211017
  37. ASPIRIN [Concomitant]
     Active Substance: ASPIRIN
     Indication: Product used for unknown indication
     Route: 048
     Dates: start: 20211017
  38. ZOLPIDEM [Concomitant]
     Active Substance: ZOLPIDEM TARTRATE
     Indication: Insomnia
     Route: 048
     Dates: start: 20211017
  39. PROPYLENE GLYCOL [Concomitant]
     Active Substance: PROPYLENE GLYCOL
     Indication: Dry eye
     Route: 048
     Dates: start: 20210912

REACTIONS (5)
  - Duodenitis [Recovered/Resolved with Sequelae]
  - Gastritis [Recovered/Resolved with Sequelae]
  - Cytomegalovirus infection reactivation [Not Recovered/Not Resolved]
  - Encephalitis [Recovered/Resolved with Sequelae]
  - Presyncope [Recovered/Resolved]

NARRATIVE: CASE EVENT DATE: 20211128
